FAERS Safety Report 6876363-4 (Version None)
Quarter: 2010Q3

REPORT INFORMATION
  Report Type: 
  Country: None (occurrence: None)
  Receive Date: 20100727
  Receipt Date: 20100716
  Transmission Date: 20110219
  Serious: Yes (Hospitalization)
  Sender: FDA-Public Use
  Company Number: NL-CELGENEUS-114-21880-10062552

PATIENT
  Sex: Female
  Weight: 78 kg

DRUGS (2)
  1. REVLIMID [Suspect]
     Indication: MYELODYSPLASTIC SYNDROME
     Route: 048
     Dates: start: 20100603
  2. LEMONEPAM [Concomitant]
     Indication: SLEEP DISORDER
     Dosage: 10
     Route: 048

REACTIONS (1)
  - PAROTITIS [None]
